FAERS Safety Report 11142896 (Version 1)
Quarter: 2015Q2

REPORT INFORMATION
  Report Type: Report from Study
  Country: TR (occurrence: TR)
  Receive Date: 20150525
  Receipt Date: 20150525
  Transmission Date: 20150821
  Serious: Yes (Other)
  Sender: FDA-Public Use
  Company Number: PHHY2015TR062797

PATIENT

DRUGS (1)
  1. SOMATROPIN [Suspect]
     Active Substance: SOMATROPIN
     Indication: GROWTH HORMONE DEFICIENCY
     Dosage: (0.9 MG/DAY FOR 1 DAY AND 1 MG/DAY FOLLOWING DAY)
     Route: 058
     Dates: start: 20130524

REACTIONS (2)
  - Dizziness [Unknown]
  - Tension [Unknown]
